FAERS Safety Report 4323344-0 (Version None)
Quarter: 2004Q1

REPORT INFORMATION
  Report Type: 
  Country: None (occurrence: None)
  Receive Date: 20040324
  Receipt Date: 20040324
  Transmission Date: 20041129
  Serious: Yes (Other)
  Sender: FDA-Public Use
  Company Number: None

PATIENT
  Age: 63 Year
  Sex: Female
  Weight: 68.0396 kg

DRUGS (5)
  1. TEQUIN [Suspect]
     Indication: SINUSITIS
     Dosage: 400MG DAILY ORAL
     Route: 048
     Dates: start: 20040311, end: 20040315
  2. AMBIEN [Concomitant]
  3. PREMARIN [Concomitant]
  4. PROTONIX [Concomitant]
  5. ZOLOFT [Concomitant]

REACTIONS (9)
  - BLOOD PRESSURE INCREASED [None]
  - DIZZINESS [None]
  - FLUSHING [None]
  - NAUSEA [None]
  - PULSE PRESSURE DECREASED [None]
  - SUPRAVENTRICULAR EXTRASYSTOLES [None]
  - VAGINAL ERYTHEMA [None]
  - VENTRICULAR EXTRASYSTOLES [None]
  - VERTIGO [None]
